FAERS Safety Report 5533907-2 (Version None)
Quarter: 2007Q4

REPORT INFORMATION
  Report Type: 
  Country: None (occurrence: None)
  Receive Date: 20071129
  Receipt Date: 20071114
  Transmission Date: 20080405
  Serious: Yes (Death)
  Sender: FDA-Public Use
  Company Number: 2007S1010667

PATIENT
  Age: 82 Year
  Sex: Female

DRUGS (11)
  1. FUROSEMIDE [Suspect]
     Indication: CARDIAC FAILURE
     Dosage: 120 MG
     Dates: end: 20070731
  2. CEFUROXIME [Suspect]
     Indication: URINARY TRACT INFECTION
  3. ADCAL-D3 [Concomitant]
  4. BECLOMETHASONE DIPROPIONATE [Concomitant]
  5. CO-CODAMOL [Concomitant]
  6. FLUOXETINE [Concomitant]
  7. GAVISCON [Concomitant]
  8. MOVICOL [Concomitant]
  9. ALBUTEROL [Concomitant]
  10. SENNA /00571901/ [Concomitant]
  11. TOLTERODINE TARTRATE [Concomitant]

REACTIONS (4)
  - CLOSTRIDIUM DIFFICILE COLITIS [None]
  - HYPOKALAEMIA [None]
  - METABOLIC ACIDOSIS [None]
  - URINARY TRACT INFECTION [None]
